FAERS Safety Report 4407067-5 (Version None)
Quarter: 2004Q3

REPORT INFORMATION
  Report Type: 
  Country: None (occurrence: None)
  Receive Date: 20040721
  Receipt Date: 20040712
  Transmission Date: 20050211
  Serious: Yes (Death, Hospitalization)
  Sender: FDA-Public Use
  Company Number: F01200401913

PATIENT
  Age: 72 Year
  Sex: Male

DRUGS (10)
  1. FLUOROURACIL [Suspect]
     Indication: GASTRIC CANCER
     Dosage: 200 MG/M2, INTRAVENOUS NOS
     Route: 042
     Dates: start: 20040323, end: 20040525
  2. EPIRUBICIN [Suspect]
     Dosage: 50 MG/M2
     Route: 040
     Dates: start: 20040525, end: 20040525
  3. CISPLATIN [Suspect]
     Dosage: 60 MG/M2 Q3W, INTRAVENOUS NOS
     Route: 042
     Dates: start: 20040525, end: 20040525
  4. LANSOPRAZOLE [Concomitant]
  5. CYCLIZINE [Concomitant]
  6. METOCLOPRAMIDE [Concomitant]
  7. DEXAMETHASONE [Concomitant]
  8. DIHYDROCODEINE [Concomitant]
  9. WARFARIN SODIUM [Concomitant]
  10. MIXTARD NOVOLET (INSULIN HUMAN) [Concomitant]

REACTIONS (6)
  - ASTHENIA [None]
  - CENTRAL LINE INFECTION [None]
  - CONFUSIONAL STATE [None]
  - FEELING ABNORMAL [None]
  - STAPHYLOCOCCAL INFECTION [None]
  - VIRAL INFECTION [None]
